FAERS Safety Report 6589294-4 (Version None)
Quarter: 2010Q1

REPORT INFORMATION
  Report Type: 
  Country: None (occurrence: None)
  Receive Date: 20100218
  Receipt Date: 20100209
  Transmission Date: 20100710
  Serious: Yes (Hospitalization, Other)
  Sender: FDA-Public Use
  Company Number: US-ABBOTT-10P-163-0625602-00

PATIENT
  Sex: Female
  Weight: 74.91 kg

DRUGS (2)
  1. HUMIRA [Suspect]
     Indication: CROHN'S DISEASE
     Route: 058
     Dates: start: 20080701, end: 20090504
  2. HUMIRA [Suspect]
     Route: 058
     Dates: start: 20100110, end: 20100110

REACTIONS (4)
  - DEHYDRATION [None]
  - INCISIONAL HERNIA [None]
  - INJECTION SITE PAIN [None]
  - INTESTINAL OBSTRUCTION [None]
